FAERS Safety Report 5771074-0 (Version None)
Quarter: 2008Q2

REPORT INFORMATION
  Report Type: 
  Country: None (occurrence: None)
  Receive Date: 20080613
  Receipt Date: 20080515
  Transmission Date: 20081010
  Serious: No
  Sender: FDA-Public Use
  Company Number: US-ABBOTT-08P-163-0453200-00

PATIENT
  Sex: Female
  Weight: 69.008 kg

DRUGS (20)
  1. HUMIRA [Suspect]
     Indication: CROHN'S DISEASE
     Dosage: LOADING DOSE
     Route: 058
     Dates: start: 20080429, end: 20080429
  2. HUMIRA [Suspect]
     Route: 058
  3. HUMIRA [Suspect]
     Route: 058
  4. IBUROFEN [Suspect]
     Indication: PAIN
     Route: 048
     Dates: start: 20080517, end: 20080519
  5. IBUROFEN [Suspect]
  6. FERROUS SULFATE TAB [Concomitant]
     Indication: ANAEMIA
     Route: 048
     Dates: start: 20080424
  7. CYANOCOBALAMIN [Concomitant]
     Indication: VITAMIN SUPPLEMENTATION
     Dates: start: 20080425, end: 20080425
  8. PREDNISONE TAB [Concomitant]
     Indication: CROHN'S DISEASE
     Route: 048
     Dates: end: 20080430
  9. MERCAPTOPURINE [Concomitant]
     Indication: CROHN'S DISEASE
     Route: 048
     Dates: start: 20060101, end: 20080430
  10. DULOXETINE HYDROCHLORIDE [Concomitant]
     Indication: DEPRESSION
     Route: 048
     Dates: start: 20040101
  11. CARISOPRODOL [Concomitant]
     Indication: MUSCLE RELAXANT THERAPY
     Dosage: ONE PILL USUALLY AT NIGHT TIME
     Dates: start: 20060101
  12. LOTAB [Concomitant]
     Indication: PAIN
     Dosage: USUALLY TAKE 3 A DAY
     Route: 048
     Dates: start: 20060101
  13. ALPRAZOLAM [Concomitant]
     Indication: ANXIETY
     Route: 048
     Dates: start: 20060101
  14. HYDROXYZINE HYDROCHLORIDE [Concomitant]
     Indication: PRURITUS
     Route: 048
     Dates: start: 20060101
  15. HYDROXYZINE HYDROCHLORIDE [Concomitant]
  16. SEROQUEL [Concomitant]
     Indication: DEPRESSION
     Route: 048
     Dates: start: 20040101
  17. SEROQUEL [Concomitant]
     Indication: SLEEP DISORDER THERAPY
  18. FUROSEMIDE [Concomitant]
     Indication: SWELLING
     Dosage: 40-80 MG DAILY
     Route: 048
     Dates: start: 20080201, end: 20080301
  19. POTASSIUM CHLORIDE [Concomitant]
     Indication: MINERAL SUPPLEMENTATION
     Route: 048
     Dates: start: 20080201, end: 20080301
  20. POTASSIUM CHLORIDE [Concomitant]
     Indication: PROPHYLAXIS

REACTIONS (6)
  - ABDOMINAL PAIN UPPER [None]
  - FATIGUE [None]
  - GAIT DISTURBANCE [None]
  - PAIN [None]
  - PAIN IN EXTREMITY [None]
  - SWELLING [None]
